FAERS Safety Report 19060336 (Version 1)
Quarter: 2021Q1

REPORT INFORMATION
  Report Type: Spontaneous
  Country: KR (occurrence: KR)
  Receive Date: 20210326
  Receipt Date: 20210326
  Transmission Date: 20210420
  Serious: Yes (Other)
  Sender: FDA-Public Use
  Company Number: KR-LUPIN PHARMACEUTICALS INC.-2021-03717

PATIENT
  Age: 13 Year
  Sex: Female

DRUGS (5)
  1. OSELTAMIVIR [Suspect]
     Active Substance: OSELTAMIVIR
     Indication: INFLUENZA
     Dosage: UNK
     Route: 048
     Dates: start: 2018
  2. VALPROIC ACID. [Concomitant]
     Active Substance: VALPROIC ACID
     Indication: BIPOLAR I DISORDER
     Dosage: 500 MILLIGRAM, QD
     Route: 065
  3. GARDASIL [Suspect]
     Active Substance: HUMAN PAPILLOMAVIRUS QUADRIVALENT (TYPES 6, 11, 16, AND 18) VACCINE, RECOMBINANT
     Indication: INFLUENZA
     Dosage: UNK
     Route: 065
     Dates: start: 2018
  4. CLONAZEPAM. [Concomitant]
     Active Substance: CLONAZEPAM
     Indication: BIPOLAR I DISORDER
     Dosage: 0.25 MILLIGRAM, QD
     Route: 065
  5. RISPERIDONE. [Concomitant]
     Active Substance: RISPERIDONE
     Indication: BIPOLAR I DISORDER
     Dosage: 0.5 MILLIGRAM, QD
     Route: 065

REACTIONS (3)
  - Emotional distress [Recovered/Resolved]
  - Bipolar I disorder [Recovered/Resolved]
  - Suicidal ideation [Recovered/Resolved]
